FAERS Safety Report 19387296 (Version 2)
Quarter: 2021Q2

REPORT INFORMATION
  Report Type: Spontaneous
  Country: PL (occurrence: PL)
  Receive Date: 20210608
  Receipt Date: 20210625
  Transmission Date: 20210717
  Serious: Yes (Other)
  Sender: FDA-Public Use
  Company Number: PL-SA-2021SA175090

PATIENT
  Sex: Female

DRUGS (2)
  1. THYROZOL [Concomitant]
     Active Substance: METHIMAZOLE
     Dosage: UNK
     Route: 048
  2. AUBAGIO [Suspect]
     Active Substance: TERIFLUNOMIDE
     Indication: RELAPSING-REMITTING MULTIPLE SCLEROSIS
     Dosage: 14 MG, QD
     Route: 048

REACTIONS (9)
  - Thyroid function test abnormal [Unknown]
  - Psychomotor hyperactivity [Not Recovered/Not Resolved]
  - Chest discomfort [Recovering/Resolving]
  - Tremor [Recovering/Resolving]
  - Weight decreased [Not Recovered/Not Resolved]
  - Cardiac disorder [Not Recovered/Not Resolved]
  - Blood thyroid stimulating hormone decreased [Recovering/Resolving]
  - Hyperthyroidism [Not Recovered/Not Resolved]
  - Palpitations [Recovering/Resolving]

NARRATIVE: CASE EVENT DATE: 2021
